FAERS Safety Report 4929128-4 (Version None)
Quarter: 2006Q1

REPORT INFORMATION
  Report Type: 
  Country: None (occurrence: None)
  Receive Date: 20060301
  Receipt Date: 20051202
  Transmission Date: 20060701
  Serious: Yes (Death, Hospitalization)
  Sender: FDA-Public Use
  Company Number: US-MERCK-0512USA00439

PATIENT
  Age: 40 Year
  Sex: Female
  Weight: 91 kg

DRUGS (7)
  1. VIOXX [Suspect]
     Indication: SPONDYLITIS
     Route: 048
     Dates: end: 20030429
  2. VIOXX [Suspect]
     Route: 048
     Dates: start: 20020101, end: 20030429
  3. OXYCONTIN [Concomitant]
     Route: 065
  4. ZANAFLEX [Concomitant]
     Route: 065
  5. HYDROCHLOROTHIAZIDE AND LISINOPRIL [Concomitant]
     Route: 065
  6. BACLOFEN [Concomitant]
     Route: 065
  7. ZANTAC [Concomitant]
     Route: 065

REACTIONS (10)
  - ADJUSTMENT DISORDER [None]
  - CEREBROVASCULAR ACCIDENT [None]
  - DELUSION [None]
  - DRUG SCREEN POSITIVE [None]
  - DYSTHYMIC DISORDER [None]
  - HALLUCINATION [None]
  - MAJOR DEPRESSION [None]
  - MYOCARDIAL INFARCTION [None]
  - OVERDOSE [None]
  - PULMONARY EMBOLISM [None]
